FAERS Safety Report 9025337 (Version 1)
Quarter: 2012Q4

REPORT INFORMATION
  Report Type: 
  Country: GB (occurrence: GB)
  Receive Date: 20121211
  Receipt Date: 20121211
  Transmission Date: 20130627
  Serious: Yes (Other)
  Sender: FDA-Public Use
  Company Number: PHFR2012GB006348

PATIENT
  Sex: Female

DRUGS (2)
  1. ESTRADOT [Suspect]
     Dosage: UNK UKN, UNK
     Route: 062
  2. ESTRADOT [Suspect]
     Dosage: 25 mg, once in a week
     Route: 062

REACTIONS (3)
  - Breast mass [Unknown]
  - Feeling abnormal [Unknown]
  - Incorrect dose administered [Unknown]
